FAERS Safety Report 10631572 (Version 1)
Quarter: 2014Q4

REPORT INFORMATION
  Report Type: Spontaneous
  Country: US (occurrence: US)
  Receive Date: 20141205
  Receipt Date: 20141205
  Transmission Date: 20150529
  Serious: No
  Sender: FDA-Public Use
  Company Number: US-BRISTOL-MYERS SQUIBB COMPANY-21524277

PATIENT
  Age: 40 Year
  Sex: Female
  Weight: 67.57 kg

DRUGS (4)
  1. BYETTA [Suspect]
     Active Substance: EXENATIDE
     Indication: TYPE 2 DIABETES MELLITUS
     Dosage: ONGOING?INTERUPT FOR WKS
     Route: 058
     Dates: start: 2014
  2. SYNTHROID [Concomitant]
     Active Substance: LEVOTHYROXINE SODIUM
  3. METFORMIN HCL [Concomitant]
     Active Substance: METFORMIN HYDROCHLORIDE
  4. GLIPIZIDE. [Concomitant]
     Active Substance: GLIPIZIDE

REACTIONS (3)
  - Drug dose omission [Not Recovered/Not Resolved]
  - Drug administration error [Not Recovered/Not Resolved]
  - Product quality issue [Unknown]

NARRATIVE: CASE EVENT DATE: 2014
